FAERS Safety Report 9261423 (Version 2)
Quarter: 2014Q2

REPORT INFORMATION
  Report Type: Spontaneous
  Country: FR (occurrence: FR)
  Receive Date: 20130429
  Receipt Date: 20140409
  Transmission Date: 20141212
  Serious: Yes (Hospitalization, Disabling, Other)
  Sender: FDA-Public Use
  Company Number: FR-BRISTOL-MYERS SQUIBB COMPANY-18821751

PATIENT
  Age: 52 Year
  Sex: Male

DRUGS (5)
  1. REYATAZ CAPS 300 MG [Suspect]
     Indication: HIV INFECTION
     Route: 048
     Dates: start: 20101028, end: 20130107
  2. TRUVADA [Suspect]
     Indication: HIV INFECTION
     Route: 048
     Dates: start: 20101028, end: 20130107
  3. NORVIR [Suspect]
     Indication: HIV INFECTION
     Route: 048
     Dates: start: 20101028, end: 20130107
  4. ISENTRESS [Suspect]
     Indication: HIV INFECTION
  5. INTELENCE [Suspect]
     Indication: HIV INFECTION

REACTIONS (3)
  - Nephropathy [Recovering/Resolving]
  - Renal tubular disorder [Recovering/Resolving]
  - Renal failure [Recovering/Resolving]
